FAERS Safety Report 24635907 (Version 1)
Quarter: 2024Q4

REPORT INFORMATION
  Report Type: Spontaneous
  Country: US (occurrence: US)
  Receive Date: 20241119
  Receipt Date: 20241119
  Transmission Date: 20250115
  Serious: No
  Sender: CATALYST PHARMA
  Company Number: US-CATALYST PHARMACEUTICALS-US-CATA-24-01037

PATIENT
  Sex: Male
  Weight: 54.889 kg

DRUGS (12)
  1. AGAMREE [Suspect]
     Active Substance: VAMOROLONE
     Indication: Duchenne muscular dystrophy
     Dosage: 7.5ML DAILY
     Route: 048
     Dates: start: 20240530, end: 2024
  2. PREVACID [Concomitant]
     Active Substance: LANSOPRAZOLE
     Indication: Product used for unknown indication
     Dosage: 15MG DAILY
     Route: 048
  3. VITAMIN D3 [Concomitant]
     Active Substance: CHOLECALCIFEROL
     Indication: Product used for unknown indication
     Dosage: 2000 UNITS DAILY
     Route: 065
  4. PROBIOTICS NOS [Concomitant]
     Active Substance: PROBIOTICS NOS
     Indication: Product used for unknown indication
     Dosage: 13.5MG DAILY
     Route: 065
  5. ENTRESTO [Concomitant]
     Active Substance: SACUBITRIL\VALSARTAN
     Indication: Product used for unknown indication
     Dosage: 24-26MG TWICE DAILY
     Route: 065
  6. CARVEDILOL [Concomitant]
     Active Substance: CARVEDILOL
     Indication: Product used for unknown indication
     Dosage: 12.5MG TWICE DAILY
     Route: 065
  7. ROSUVASTATIN [Concomitant]
     Active Substance: ROSUVASTATIN
     Indication: Product used for unknown indication
     Dosage: 10MG DAILY
     Route: 065
  8. IBUPROFEN [Concomitant]
     Active Substance: IBUPROFEN
     Indication: Product used for unknown indication
     Dosage: 200MG AS NEEDED
     Route: 065
  9. EQ QUETIAPINE L [Concomitant]
     Indication: Product used for unknown indication
     Dosage: ONE DAILY MEN^S ORAL TABLET - TAKING TWO TABLETS DAILY
     Route: 048
  10. CICLOPIROX OLAMINE [Concomitant]
     Active Substance: CICLOPIROX OLAMINE
     Indication: Product used for unknown indication
     Dosage: 0.77% AS NEEDED
     Route: 065
  11. NYSTOP [Concomitant]
     Active Substance: NYSTATIN
     Indication: Product used for unknown indication
     Dosage: 100.000 UNITS DAILY
     Route: 065
  12. EMFLAZA [Concomitant]
     Active Substance: DEFLAZACORT
     Indication: Duchenne muscular dystrophy
     Dosage: UNKNOWN
     Route: 065
     Dates: start: 20240907

REACTIONS (5)
  - Muscle atrophy [Unknown]
  - Productive cough [Unknown]
  - Respiratory muscle weakness [Unknown]
  - Muscular weakness [Unknown]
  - Illness [Unknown]

NARRATIVE: CASE EVENT DATE: 20240101
